FAERS Safety Report 22226504 (Version 1)
Quarter: 2023Q2

REPORT INFORMATION
  Report Type: Spontaneous
  Country: US (occurrence: US)
  Receive Date: 20230419
  Receipt Date: 20230419
  Transmission Date: 20230721
  Serious: No
  Sender: FDA-Public Use
  Company Number: US-002147023-NVSC2023US089150

PATIENT
  Age: 67 Year
  Sex: Male

DRUGS (3)
  1. EVEROLIMUS [Suspect]
     Active Substance: EVEROLIMUS
     Indication: Product used for unknown indication
     Dosage: 5 MG, QD
     Route: 048
  2. LENVIMA [Suspect]
     Active Substance: LENVATINIB
     Indication: Renal cancer
     Dosage: 18 MG
     Route: 048
     Dates: start: 202212
  3. LENVIMA [Suspect]
     Active Substance: LENVATINIB
     Indication: Metastases to lung

REACTIONS (3)
  - Pain in extremity [Not Recovered/Not Resolved]
  - Nausea [Unknown]
  - Vomiting [Unknown]
